FAERS Safety Report 8425412-0 (Version None)
Quarter: 2012Q2

REPORT INFORMATION
  Report Type: 
  Country: None (occurrence: None)
  Receive Date: 20120605
  Receipt Date: 20120605
  Transmission Date: 20120825
  Serious: Yes (Hospitalization)
  Sender: FDA-Public Use
  Company Number: None

PATIENT
  Age: 72 Year
  Sex: Male

DRUGS (2)
  1. MORPHINE [Suspect]
  2. FENTANYL-75 [Suspect]
     Indication: GASTROINTESTINAL DISORDER THERAPY
     Dosage: 1 PATCH

REACTIONS (1)
  - UNEVALUABLE EVENT [None]
